FAERS Safety Report 22104846 (Version 1)
Quarter: 2023Q1

REPORT INFORMATION
  Report Type: Report from Study
  Country: US (occurrence: US)
  Receive Date: 20230316
  Receipt Date: 20230316
  Transmission Date: 20230417
  Serious: Yes (Other)
  Sender: FDA-Public Use
  Company Number: US-002147023-NVSC2023US055430

PATIENT
  Sex: Male

DRUGS (1)
  1. LEQVIO [Suspect]
     Active Substance: INCLISIRAN SODIUM
     Indication: Product used for unknown indication
     Dosage: UNK
     Route: 058
     Dates: start: 20230124

REACTIONS (8)
  - Diabetes mellitus [Unknown]
  - Condition aggravated [Unknown]
  - Nasopharyngitis [Unknown]
  - Mobility decreased [Unknown]
  - Abdominal pain [Unknown]
  - Pain in extremity [Unknown]
  - Injection site reaction [Unknown]
  - Bronchitis [Unknown]
